FAERS Safety Report 19654117 (Version 1)
Quarter: 2021Q3

REPORT INFORMATION
  Report Type: Spontaneous
  Country: CN (occurrence: CN)
  Receive Date: 20210804
  Receipt Date: 20210804
  Transmission Date: 20211014
  Serious: Yes (Other)
  Sender: FDA-Public Use
  Company Number: CN-TEVA-2021-CN-1938150

PATIENT
  Age: 31 Year
  Sex: Female

DRUGS (2)
  1. CYCLOSPORINE A [Suspect]
     Active Substance: CYCLOSPORINE
     Indication: APLASIA PURE RED CELL
     Route: 065
  2. METHYLPREDNISOLONE. [Concomitant]
     Active Substance: METHYLPREDNISOLONE
     Indication: APLASIA PURE RED CELL
     Dosage: 32 MILLIGRAM DAILY; DOSAGE WAS REDUCED THEREAFTER
     Route: 065

REACTIONS (1)
  - Renal infarct [Recovered/Resolved]
